FAERS Safety Report 9791642 (Version 12)
Quarter: 2015Q4

REPORT INFORMATION
  Report Type: Report from Study
  Country: CN (occurrence: CN)
  Receive Date: 20140102
  Receipt Date: 20151126
  Transmission Date: 20160305
  Serious: Yes (Life-Threatening, Hospitalization, Disabling)
  Sender: FDA-Public Use
  Company Number: CN-ROCHE-1324437

PATIENT
  Age: 32 Year
  Sex: Male

DRUGS (6)
  1. PREDNISONE. [Concomitant]
     Active Substance: PREDNISONE
     Dosage: 30 MG EVERY OTHER DAY
     Route: 048
     Dates: start: 20130503
  2. ATORVASTATIN [Concomitant]
     Active Substance: ATORVASTATIN
     Indication: IGA NEPHROPATHY
     Dosage: EVERY EVENING
     Route: 065
     Dates: start: 201301
  3. CELLCEPT [Suspect]
     Active Substance: MYCOPHENOLATE MOFETIL\MYCOPHENOLATE MOFETIL HYDROCHLORIDE
     Indication: IGA NEPHROPATHY
     Dosage: 2 CAPSULES IN THE MORNING AND EVENING RESPECTIVELY
     Route: 048
     Dates: start: 20130113, end: 20130503
  4. NIAODUQING KELI [Concomitant]
  5. PREDNISONE. [Concomitant]
     Active Substance: PREDNISONE
     Indication: IGA NEPHROPATHY
     Route: 048
     Dates: start: 20130113, end: 20130503
  6. METHYLPREDNISOLONE. [Suspect]
     Active Substance: METHYLPREDNISOLONE
     Indication: IGA NEPHROPATHY
     Dosage: 6 PILLS IN MORNING
     Route: 048
     Dates: start: 201301, end: 201403

REACTIONS (13)
  - Respiratory failure [Recovered/Resolved]
  - Tuberculous pleurisy [Recovering/Resolving]
  - Blood glucose increased [Recovered/Resolved]
  - Nephrolithiasis [Unknown]
  - Drug intolerance [Unknown]
  - Pneumonia [Recovered/Resolved]
  - Hypertension [Unknown]
  - Cytomegalovirus infection [Recovered/Resolved with Sequelae]
  - Acute respiratory distress syndrome [Recovered/Resolved]
  - Pulmonary tuberculosis [Recovering/Resolving]
  - Ill-defined disorder [Unknown]
  - Off label use [Unknown]
  - Hypoalbuminaemia [Recovering/Resolving]

NARRATIVE: CASE EVENT DATE: 201301
